FAERS Safety Report 5470527-2 (Version None)
Quarter: 2007Q3

REPORT INFORMATION
  Report Type: 
  Country: None (occurrence: None)
  Receive Date: 20070927
  Receipt Date: 20070927
  Transmission Date: 20080115
  Serious: Yes (Other)
  Sender: FDA-Public Use
  Company Number: None

PATIENT
  Age: 77 Year
  Sex: Male
  Weight: 70.3075 kg

DRUGS (1)
  1. HYDROCODONE BITARTRATE [Suspect]
     Indication: ABDOMINAL PAIN
     Dosage: 1/2 TABLET Q6H PO
     Route: 048
     Dates: start: 20070814, end: 20070924

REACTIONS (6)
  - DRUG INEFFECTIVE [None]
  - INADEQUATE ANALGESIA [None]
  - INCORRECT DOSE ADMINISTERED [None]
  - PHARMACEUTICAL PRODUCT COMPLAINT [None]
  - POOR QUALITY DRUG ADMINISTERED [None]
  - SELF-MEDICATION [None]
